FAERS Safety Report 23039931 (Version 1)
Quarter: 2023Q4

REPORT INFORMATION
  Report Type: Report from Study
  Country: US (occurrence: US)
  Receive Date: 20231006
  Receipt Date: 20231006
  Transmission Date: 20240110
  Serious: Yes (Hospitalization)
  Sender: FDA-Public Use
  Company Number: US-GILEAD-2023-0646382

PATIENT
  Age: 53 Year
  Sex: Female

DRUGS (7)
  1. SACITUZUMAB GOVITECAN-HZIY [Suspect]
     Active Substance: SACITUZUMAB GOVITECAN-HZIY
     Indication: Breast cancer metastatic
     Dosage: 10 MG/KG D1 AND D8 OF 21 DAY CYCLE
     Route: 042
     Dates: start: 20230731, end: 20230923
  2. PEMBROLIZUMAB [Suspect]
     Active Substance: PEMBROLIZUMAB
     Indication: Breast cancer metastatic
     Dosage: 200 MG
     Route: 042
     Dates: start: 20230731, end: 20230923
  3. PROCHLORPERAZINE EDISYLATE [Concomitant]
     Active Substance: PROCHLORPERAZINE EDISYLATE
     Dosage: UNK
     Dates: start: 20230731
  4. ROBITUSSIN (GUAIFENESIN) [Concomitant]
     Active Substance: GUAIFENESIN
     Dosage: UNK
     Dates: start: 20230731
  5. NIVESTYM [FILGRASTIM] [Concomitant]
     Dosage: UNK
     Dates: start: 20230828
  6. ATIVAN [Concomitant]
     Active Substance: LORAZEPAM
     Dosage: UNK
     Dates: start: 20230905
  7. ZOFRAN [Concomitant]
     Active Substance: ONDANSETRON HYDROCHLORIDE
     Dosage: UNK
     Dates: start: 20230918

REACTIONS (3)
  - Swollen tongue [Recovered/Resolved]
  - Hiatus hernia [Unknown]
  - Abdominal pain upper [Recovered/Resolved]

NARRATIVE: CASE EVENT DATE: 20230927
